FAERS Safety Report 17567892 (Version 1)
Quarter: 2020Q1

REPORT INFORMATION
  Report Type: Report from Study
  Country: FR (occurrence: FR)
  Receive Date: 20200320
  Receipt Date: 20200320
  Transmission Date: 20200409
  Serious: Yes (Other)
  Sender: FDA-Public Use
  Company Number: NVSC2020FR078358

PATIENT
  Sex: Female

DRUGS (1)
  1. COSENTYX [Suspect]
     Active Substance: SECUKINUMAB
     Indication: PSORIASIS
     Dosage: UNK
     Route: 058
     Dates: start: 20190219, end: 201912

REACTIONS (12)
  - Staphylococcal infection [Recovered/Resolved]
  - Otorrhoea [Recovered/Resolved]
  - Gingival pain [Not Recovered/Not Resolved]
  - Tongue discomfort [Not Recovered/Not Resolved]
  - Rhinorrhoea [Recovered/Resolved]
  - Nasal crusting [Recovered/Resolved]
  - Pigmentation disorder [Recovered/Resolved]
  - Fatigue [Recovered/Resolved]
  - Oropharyngeal discomfort [Recovered/Resolved]
  - Cough [Recovered/Resolved]
  - Injection site urticaria [Recovered/Resolved]
  - Nasopharyngitis [Recovered/Resolved]
